FAERS Safety Report 5925962-2 (Version None)
Quarter: 2008Q4

REPORT INFORMATION
  Report Type: 
  Country: None (occurrence: None)
  Receive Date: 20081021
  Receipt Date: 20081009
  Transmission Date: 20090506
  Serious: Yes (Other)
  Sender: FDA-Public Use
  Company Number: AU-PFIZER INC-2008086149

PATIENT
  Age: 54 Year
  Sex: Female

DRUGS (4)
  1. NEURONTIN [Suspect]
     Indication: NEURALGIA
  2. OROXINE [Concomitant]
  3. IBUPROFEN TABLETS [Concomitant]
  4. VITAMINS [Concomitant]

REACTIONS (3)
  - CONFUSIONAL STATE [None]
  - MEMORY IMPAIRMENT [None]
  - POST PROCEDURAL SWELLING [None]
